FAERS Safety Report 19074769 (Version 1)
Quarter: 2021Q1

REPORT INFORMATION
  Report Type: Spontaneous
  Country: US (occurrence: US)
  Receive Date: 20210330
  Receipt Date: 20210330
  Transmission Date: 20210420
  Serious: No
  Sender: FDA-Public Use
  Company Number: US-ROCHE-2603927

PATIENT
  Sex: Female

DRUGS (11)
  1. MAGNESIUM [Concomitant]
     Active Substance: MAGNESIUM
  2. AMOXICILLIN. [Concomitant]
     Active Substance: AMOXICILLIN
  3. PRAMIPEXOLE. [Concomitant]
     Active Substance: PRAMIPEXOLE
  4. CLONAZEPAM. [Concomitant]
     Active Substance: CLONAZEPAM
  5. CLOBETASOL PROPIONATE. [Concomitant]
     Active Substance: CLOBETASOL PROPIONATE
  6. ERIVEDGE [Suspect]
     Active Substance: VISMODEGIB
     Indication: CONGENITAL ANOMALY
     Dosage: 1 CAPSULE
     Route: 048
     Dates: start: 20150610
  7. SIMVASTATIN. [Concomitant]
     Active Substance: SIMVASTATIN
  8. NEOMYCIN;POLYMYXIN B [Concomitant]
  9. LEVOTHYROXINE. [Concomitant]
     Active Substance: LEVOTHYROXINE
  10. OMEPRAZOLE. [Concomitant]
     Active Substance: OMEPRAZOLE
  11. CIPROFLOXACIN. [Concomitant]
     Active Substance: CIPROFLOXACIN

REACTIONS (4)
  - Off label use [Unknown]
  - Ageusia [Not Recovered/Not Resolved]
  - Intentional product use issue [Unknown]
  - Muscle spasms [Not Recovered/Not Resolved]
